FAERS Safety Report 21002428 (Version 1)
Quarter: 2022Q2

REPORT INFORMATION
  Report Type: Spontaneous
  Country: US (occurrence: US)
  Receive Date: 20220624
  Receipt Date: 20220624
  Transmission Date: 20220721
  Serious: Yes (Hospitalization, Other)
  Sender: FDA-Public Use
  Company Number: US-BRISTOL-MYERS SQUIBB COMPANY-2022-057382

PATIENT
  Age: 72 Year
  Sex: Male

DRUGS (1)
  1. POMALYST [Suspect]
     Active Substance: POMALIDOMIDE
     Indication: Plasma cell myeloma
     Dosage: 1 CAPSULE BY MOUTH WHOLE WITH WATER, WITH OR W/O FOOD AT THE SAME TIME DAILY ON DAYS 1-21 OF EACH 28
     Route: 048

REACTIONS (2)
  - Fatigue [Unknown]
  - Pulmonary amyloidosis [Unknown]
